FAERS Safety Report 15067573 (Version 2)
Quarter: 2018Q3

REPORT INFORMATION
  Report Type: Report from Study
  Country: US (occurrence: US)
  Receive Date: 20180626
  Receipt Date: 20180705
  Transmission Date: 20181010
  Serious: Yes (Other)
  Sender: FDA-Public Use
  Company Number: PHEH2018US025742

PATIENT
  Sex: Female
  Weight: 56.4 kg

DRUGS (5)
  1. FLECAINIDE ACETATE. [Concomitant]
     Active Substance: FLECAINIDE ACETATE
     Indication: PRODUCT USED FOR UNKNOWN INDICATION
     Dosage: 50 MG, BID
     Route: 048
  2. COUMADIN [Concomitant]
     Active Substance: WARFARIN SODIUM
     Indication: PRODUCT USED FOR UNKNOWN INDICATION
     Dosage: 2.5 MG, TAKE AS DIRECTED
     Route: 048
  3. MEDICAL PROVIDER SINGLE USE EZ FLU SHOT 2013? [Concomitant]
     Indication: PRODUCT USED FOR UNKNOWN INDICATION
     Route: 065
  4. CARDIZEM CD [Concomitant]
     Active Substance: DILTIAZEM HYDROCHLORIDE
     Indication: PRODUCT USED FOR UNKNOWN INDICATION
     Dosage: 120 MG, QD
     Route: 048
  5. GLEEVEC [Suspect]
     Active Substance: IMATINIB MESYLATE
     Indication: GASTROINTESTINAL STROMAL TUMOUR
     Dosage: UNK
     Route: 065
     Dates: start: 20150519, end: 201805

REACTIONS (17)
  - Cystic fibrosis pancreatic [Unknown]
  - Second primary malignancy [Unknown]
  - Pleural effusion [Unknown]
  - Blood pressure increased [Unknown]
  - Activated partial thromboplastin time prolonged [Unknown]
  - Prothrombin level increased [Unknown]
  - Red blood cell count decreased [Unknown]
  - Gastritis [Unknown]
  - Blood alkaline phosphatase increased [Unknown]
  - Adenocarcinoma [Unknown]
  - Monocyte count increased [Unknown]
  - Gastric polyps [Unknown]
  - Creatinine renal clearance decreased [Unknown]
  - Arthralgia [Unknown]
  - Non-small cell lung cancer [Unknown]
  - Haematocrit decreased [Unknown]
  - Weight decreased [Unknown]
